FAERS Safety Report 24283926 (Version 3)
Quarter: 2024Q4

REPORT INFORMATION
  Report Type: Report from Study
  Country: CA (occurrence: CA)
  Receive Date: 20240905
  Receipt Date: 20241209
  Transmission Date: 20250114
  Serious: Yes (Hospitalization, Other)
  Sender: ABBVIE
  Company Number: CA-ABBVIE-5793480

PATIENT
  Age: 75 Year
  Sex: Male

DRUGS (3)
  1. LUPRON DEPOT [Suspect]
     Active Substance: LEUPROLIDE ACETATE
     Indication: Prostate cancer
     Route: 030
     Dates: start: 20220304
  2. LUPRON DEPOT [Suspect]
     Active Substance: LEUPROLIDE ACETATE
     Route: 030
  3. LUPRON DEPOT [Suspect]
     Active Substance: LEUPROLIDE ACETATE
     Route: 030

REACTIONS (13)
  - Haemorrhage urinary tract [Recovering/Resolving]
  - Arthralgia [Recovering/Resolving]
  - Blood urine present [Recovered/Resolved]
  - Nasopharyngitis [Recovering/Resolving]
  - Back injury [Recovering/Resolving]
  - Back pain [Recovering/Resolving]
  - Weight decreased [Unknown]
  - Urinary incontinence [Not Recovered/Not Resolved]
  - Blood glucose increased [Recovering/Resolving]
  - Pain in extremity [Recovering/Resolving]
  - Fall [Recovering/Resolving]
  - Prostatic operation [Unknown]
  - Fall [Unknown]

NARRATIVE: CASE EVENT DATE: 20240101
